FAERS Safety Report 17789122 (Version 1)
Quarter: 2020Q2

REPORT INFORMATION
  Report Type: Spontaneous
  Country: US (occurrence: US)
  Receive Date: 20200514
  Receipt Date: 20200514
  Transmission Date: 20200714
  Serious: No
  Sender: FDA-Public Use
  Company Number: US-CIPHER-2019-US-000180

PATIENT
  Age: 14 Month
  Sex: Female

DRUGS (4)
  1. TRAMADOL HYDROCHLORIDE. [Suspect]
     Active Substance: TRAMADOL HYDROCHLORIDE
  2. AMITRIPTYLINE [Concomitant]
     Active Substance: AMITRIPTYLINE
  3. CLONIDINE. [Concomitant]
     Active Substance: CLONIDINE
  4. GABAPENTIN. [Concomitant]
     Active Substance: GABAPENTIN

REACTIONS (9)
  - Autonomic nervous system imbalance [Unknown]
  - Visceral pain [Not Recovered/Not Resolved]
  - Blindness [Unknown]
  - Neurogenic bowel [Unknown]
  - Contraindicated product administered [Unknown]
  - Developmental delay [Unknown]
  - Neurogenic bladder [Unknown]
  - Feeding intolerance [Not Recovered/Not Resolved]
  - Off label use [Unknown]
